FAERS Safety Report 6502402-6 (Version None)
Quarter: 2009Q4

REPORT INFORMATION
  Report Type: 
  Country: None (occurrence: None)
  Receive Date: 20091216
  Receipt Date: 20091116
  Transmission Date: 20100525
  Serious: No
  Sender: FDA-Public Use
  Company Number: US-ABBOTT-09P-163-0609398-00

PATIENT
  Sex: Male

DRUGS (5)
  1. TRILIPIX [Suspect]
     Indication: BLOOD CHOLESTEROL INCREASED
     Dates: start: 20090901
  2. JANUVIA [Suspect]
     Indication: DIABETES MELLITUS
     Dosage: UNKNOWN
     Dates: start: 20090901
  3. GABAPENTIN [Concomitant]
     Indication: NEURALGIA
  4. GLYBURIDE [Concomitant]
     Indication: DIABETES MELLITUS
     Dosage: UNKNOWN
  5. VERAPAMIL [Concomitant]
     Indication: HEART RATE IRREGULAR
     Dosage: UNKNOWN

REACTIONS (1)
  - ARTHRALGIA [None]
